FAERS Safety Report 13258913 (Version 1)
Quarter: 2017Q1

REPORT INFORMATION
  Report Type: Spontaneous
  Country: DE (occurrence: DE)
  Receive Date: 20170222
  Receipt Date: 20170222
  Transmission Date: 20170428
  Serious: Yes (Congenital Anomaly, Other)
  Sender: FDA-Public Use
  Company Number: DE-SUN PHARMACEUTICAL INDUSTRIES LTD-2017RR-133970

PATIENT
  Age: 1 Day
  Sex: Male
  Weight: 2.72 kg

DRUGS (4)
  1. FOLIO [Concomitant]
     Active Substance: FOLIC ACID
     Indication: PROPHYLAXIS OF NEURAL TUBE DEFECT
     Dosage: 0.4 MG, QD, 4.6 - 39.5 GESTATIONAL WEEK
     Route: 064
  2. VENLAFAXINE [Suspect]
     Active Substance: VENLAFAXINE HYDROCHLORIDE
     Indication: ANXIETY DISORDER
     Dosage: 150 MG, QD, 0-39.3 GESTATIONAL WEEK
     Route: 064
     Dates: start: 20151212, end: 20160913
  3. MIRTAZAPINE. [Suspect]
     Active Substance: MIRTAZAPINE
     Indication: ANXIETY DISORDER
     Dosage: 15 MG, QD, 0-39.3 GESTATIONAL WEEK
     Route: 064
     Dates: start: 20151212, end: 20160913
  4. METOHEXAL [Suspect]
     Active Substance: METOPROLOL SUCCINATE
     Indication: HYPERTENSION
     Dosage: 47.5MG/D IN THE 1ST TRIMESTER, INCREASED TO 142.5 MG/D IN THE 3RD
     Route: 064
     Dates: start: 20151212, end: 20160913

REACTIONS (3)
  - Syndactyly [Not Recovered/Not Resolved]
  - Polydactyly [Not Recovered/Not Resolved]
  - Small for dates baby [Not Recovered/Not Resolved]

NARRATIVE: CASE EVENT DATE: 20160913
